FAERS Safety Report 11645208 (Version 1)
Quarter: 2015Q4

REPORT INFORMATION
  Report Type: Report from Study
  Country: BR (occurrence: BR)
  Receive Date: 20151020
  Receipt Date: 20151020
  Transmission Date: 20160304
  Serious: Yes (Other)
  Sender: FDA-Public Use
  Company Number: BR-BAYER-2012-125421

PATIENT
  Age: 21 Year
  Sex: Female

DRUGS (6)
  1. BUDESONIDE. [Concomitant]
     Active Substance: BUDESONIDE
     Indication: BRONCHITIS
  2. BETAFERON [Suspect]
     Active Substance: INTERFERON BETA-1B
     Indication: RELAPSING-REMITTING MULTIPLE SCLEROSIS
     Dosage: 8 MIU, QOD
     Route: 058
     Dates: start: 2001
  3. TAMISA [Concomitant]
     Active Substance: ETHINYL ESTRADIOL\GESTODENE
     Indication: CONTRACEPTION
     Dosage: 1 DF, QD
     Route: 048
  4. BUDESONIDE. [Concomitant]
     Active Substance: BUDESONIDE
     Indication: ASTHMA
     Dosage: UNK
     Route: 055
  5. BETAFERON [Suspect]
     Active Substance: INTERFERON BETA-1B
     Indication: RELAPSING-REMITTING MULTIPLE SCLEROSIS
     Dosage: 300 ?G, UNK
     Route: 058
  6. MACRODANTIN [Concomitant]
     Active Substance: NITROFURANTOIN
     Indication: URINARY INCONTINENCE
     Dosage: 1 DF, QD
     Route: 048

REACTIONS (13)
  - Injection site scar [Recovered/Resolved with Sequelae]
  - Product use issue [None]
  - Skin necrosis [Not Recovered/Not Resolved]
  - Erythema [Not Recovered/Not Resolved]
  - Injection site necrosis [Recovered/Resolved]
  - Muscular weakness [Recovered/Resolved]
  - Device malfunction [Unknown]
  - Injection site discolouration [Not Recovered/Not Resolved]
  - Injection site injury [Recovering/Resolving]
  - Injection site necrosis [Recovered/Resolved with Sequelae]
  - Limb injury [Recovered/Resolved]
  - Injection site inflammation [Recovering/Resolving]
  - Injection site mass [Not Recovered/Not Resolved]

NARRATIVE: CASE EVENT DATE: 2001
